FAERS Safety Report 16694585 (Version 2)
Quarter: 2019Q3

REPORT INFORMATION
  Report Type: Report from Study
  Country: LB (occurrence: LB)
  Receive Date: 20190812
  Receipt Date: 20190829
  Transmission Date: 20191004
  Serious: Yes (Other)
  Sender: FDA-Public Use
  Company Number: PHHY2019LB176818

PATIENT
  Age: 40 Year
  Sex: Male

DRUGS (3)
  1. GILENYA [Suspect]
     Active Substance: FINGOLIMOD HYDROCHLORIDE
     Indication: MULTIPLE SCLEROSIS
     Dosage: 0.5 MG, QD
     Route: 048
     Dates: start: 20140101
  2. GILENYA [Suspect]
     Active Substance: FINGOLIMOD HYDROCHLORIDE
     Dosage: 0.5 MG, Q5W (5 TABLETS PER WEEK)
     Route: 048
     Dates: start: 20190702, end: 20190808
  3. GILENYA [Suspect]
     Active Substance: FINGOLIMOD HYDROCHLORIDE
     Dosage: 0.5 MG, QD
     Route: 048
     Dates: start: 20190808

REACTIONS (8)
  - Vitamin C deficiency [Unknown]
  - Vitamin B complex deficiency [Unknown]
  - Vitamin K deficiency [Unknown]
  - Hepatic enzyme increased [Recovering/Resolving]
  - Pruritus [Recovering/Resolving]
  - Malnutrition [Unknown]
  - Prescribed underdose [Unknown]
  - Lipids increased [Recovering/Resolving]

NARRATIVE: CASE EVENT DATE: 20190702
